FAERS Safety Report 5889296-7 (Version None)
Quarter: 2008Q3

REPORT INFORMATION
  Report Type: 
  Country: None (occurrence: None)
  Receive Date: 20080919
  Receipt Date: 20080910
  Transmission Date: 20090109
  Serious: Yes (Other)
  Sender: FDA-Public Use
  Company Number: DE-WATSON-2008-05425

PATIENT
  Age: 47 Year
  Sex: Male

DRUGS (3)
  1. PREDNISOLONE ACETATE [Suspect]
     Indication: NECROTISING RETINITIS
     Dosage: 20 MG, DAILY PER OS
     Route: 047
     Dates: start: 20020901
  2. PREDNISOLONE ACETATE [Suspect]
     Dosage: 50 MG, DAILY PER OS
     Route: 047
     Dates: start: 20020801
  3. ACYCLOVIR [Concomitant]
     Indication: NECROTISING RETINITIS
     Dosage: 3 X 500 MG/DAY
     Route: 042
     Dates: start: 20020801

REACTIONS (1)
  - CHORIORETINOPATHY [None]
